FAERS Safety Report 5893499-5 (Version None)
Quarter: 2008Q3

REPORT INFORMATION
  Report Type: 
  Country: None (occurrence: None)
  Receive Date: 20080919
  Receipt Date: 20080618
  Transmission Date: 20090109
  Serious: Yes (Hospitalization)
  Sender: FDA-Public Use
  Company Number: 2008PL000134

PATIENT
  Age: 45 Year
  Sex: Male

DRUGS (1)
  1. AZATHIOPRINE [Suspect]
     Indication: CROHN'S DISEASE
     Dosage: PO
     Route: 048

REACTIONS (8)
  - BLOOD BILIRUBIN INCREASED [None]
  - GASTRIC VARICES [None]
  - HEPATOTOXICITY [None]
  - NODULAR REGENERATIVE HYPERPLASIA [None]
  - PLATELET COUNT DECREASED [None]
  - PORTAL HYPERTENSION [None]
  - SPLENIC VARICES [None]
  - VARICES OESOPHAGEAL [None]
